FAERS Safety Report 13383963 (Version 4)
Quarter: 2017Q3

REPORT INFORMATION
  Report Type: Spontaneous
  Country: US (occurrence: US)
  Receive Date: 20170329
  Receipt Date: 20170706
  Transmission Date: 20171127
  Serious: Yes (Life-Threatening, Hospitalization, Other)
  Sender: FDA-Public Use
  Company Number: US-009507513-1703USA011928

PATIENT
  Age: 75 Year
  Sex: Female
  Weight: 61 kg

DRUGS (4)
  1. HYDROCHLOROTHIAZIDE. [Suspect]
     Active Substance: HYDROCHLOROTHIAZIDE
     Indication: RENAL IMPAIRMENT
     Dosage: 25 MG, QD
     Route: 048
     Dates: start: 20170403, end: 20170501
  2. ZEPATIER [Suspect]
     Active Substance: ELBASVIR\GRAZOPREVIR
     Dosage: 50/100, QD, (PLANNED STOP DATE WAS REPORTED AS 02-JUN-2017)
     Route: 048
     Dates: start: 20170327
  3. ZEPATIER [Suspect]
     Active Substance: ELBASVIR\GRAZOPREVIR
     Dosage: 50/100, QD, (PLANNED STOP DATE WAS REPORTED AS 02-JUN-2017)
     Route: 048
     Dates: start: 20170331
  4. ZEPATIER [Suspect]
     Active Substance: ELBASVIR\GRAZOPREVIR
     Indication: HEPATITIS C
     Dosage: 50/100, QD
     Route: 048
     Dates: start: 20170310, end: 20170322

REACTIONS (2)
  - Renal impairment [Unknown]
  - Hypertensive crisis [Recovered/Resolved]

NARRATIVE: CASE EVENT DATE: 201703
